FAERS Safety Report 4357741-4 (Version None)
Quarter: 2004Q2

REPORT INFORMATION
  Report Type: 
  Country: None (occurrence: None)
  Receive Date: 20040511
  Receipt Date: 20040430
  Transmission Date: 20050107
  Serious: Yes (Life-Threatening, Other)
  Sender: FDA-Public Use
  Company Number: HQWYE670103MAY04

PATIENT
  Age: 55 Year
  Sex: Female

DRUGS (1)
  1. CORDARONE [Suspect]
     Indication: MITRAL VALVE STENOSIS
     Dosage: 150 MG IN 100 CC DEXTROSE SOLUTION OVER 5 MINUTES
     Route: 042
     Dates: start: 20040416, end: 20040416

REACTIONS (2)
  - DYSPNOEA [None]
  - FLUSHING [None]
